FAERS Safety Report 14910175 (Version 1)
Quarter: 2018Q2

REPORT INFORMATION
  Report Type: Spontaneous
  Country: IT (occurrence: IT)
  Receive Date: 20180517
  Receipt Date: 20180517
  Transmission Date: 20180711
  Serious: Yes (Hospitalization)
  Sender: FDA-Public Use
  Company Number: IT-TEVA-2018-IT-892054

PATIENT
  Age: 59 Year
  Sex: Male

DRUGS (4)
  1. FLUOXETINE [Suspect]
     Active Substance: FLUOXETINE HYDROCHLORIDE
     Dosage: 1 DOSAGE FORMS DAILY;
     Route: 048
  2. PROTIADEN 75 MG COMPRESSE RIVESTITE [Suspect]
     Active Substance: DOTHIEPIN HYDROCHLORIDE
     Dosage: 1 DOSAGE FORMS DAILY;
     Route: 048
  3. LEVOPRAID (SULPIRIDE) [Suspect]
     Active Substance: SULPIRIDE
     Dosage: 1 DOSAGE FORMS DAILY;
     Route: 048
  4. ANAFRANIL [Suspect]
     Active Substance: CLOMIPRAMINE HYDROCHLORIDE
     Dosage: 2 DOSAGE FORMS DAILY;
     Route: 030

REACTIONS (4)
  - Extrapyramidal disorder [Recovering/Resolving]
  - Speech disorder [Recovering/Resolving]
  - Bradykinesia [Recovering/Resolving]
  - Somnolence [Recovering/Resolving]
